FAERS Safety Report 9198638 (Version 1)
Quarter: 2013Q1

REPORT INFORMATION
  Report Type: Spontaneous
  Country: GB (occurrence: GB)
  Receive Date: 20130329
  Receipt Date: 20130329
  Transmission Date: 20140127
  Serious: Yes (Other)
  Sender: FDA-Public Use
  Company Number: GB-JNJFOC-20130315500

PATIENT
  Age: 30 Year
  Sex: Male
  Weight: 82.55 kg

DRUGS (11)
  1. TRAMADOL HYDROCHLORIDE [Suspect]
     Indication: ANALGESIC THERAPY
     Dosage: AS REQUIRED
     Route: 048
     Dates: start: 19950101, end: 20130201
  2. PARACETAMOL, CODEINE PHOSPHATE, CAFFEINE [Suspect]
     Indication: ANALGESIC THERAPY
     Route: 048
     Dates: start: 19950101, end: 20130201
  3. NUROFEN [Suspect]
     Indication: ANALGESIC THERAPY
     Route: 048
     Dates: start: 19950101, end: 20130201
  4. ASPIRIN\CODEINE [Suspect]
     Indication: ANALGESIC THERAPY
     Route: 048
     Dates: start: 19950101, end: 20130201
  5. DIHYDROCODEINE BITARTRATE [Suspect]
     Indication: ANALGESIC THERAPY
     Route: 048
     Dates: start: 19950101, end: 20130201
  6. DIHYDROCODEINE [Suspect]
     Indication: ANALGESIC THERAPY
     Route: 048
     Dates: start: 19950101, end: 20130201
  7. CODEINE PHOSPHATE [Suspect]
     Indication: ANALGESIC THERAPY
     Dosage: DOSE DECREASED BY 2MG A WEEK FROM 16MG A DAY DOWN TO 2 MG A DAY
     Route: 048
     Dates: start: 19950101, end: 20130201
  8. ALCOHOL [Suspect]
     Indication: PRODUCT USED FOR UNKNOWN INDICATION
     Route: 065
  9. BUPRENORPHINE [Suspect]
     Indication: DRUG DEPENDENCE
     Route: 065
  10. SERTRALINE [Concomitant]
     Indication: PRODUCT USED FOR UNKNOWN INDICATION
     Route: 065
  11. PROPRANOLOL [Concomitant]
     Indication: PRODUCT USED FOR UNKNOWN INDICATION
     Route: 065

REACTIONS (11)
  - Abnormal behaviour [Unknown]
  - Withdrawal syndrome [Unknown]
  - Alcoholism [Unknown]
  - Erectile dysfunction [Unknown]
  - Ejaculation failure [Unknown]
  - Drug dependence [Recovering/Resolving]
  - Insomnia [Unknown]
  - Vomiting [Unknown]
  - Mood altered [Unknown]
  - Mental impairment [None]
  - Dyskinesia [None]
